FAERS Safety Report 24155302 (Version 1)
Quarter: 2024Q3

REPORT INFORMATION
  Report Type: Spontaneous
  Country: US (occurrence: US)
  Receive Date: 20240731
  Receipt Date: 20240731
  Transmission Date: 20241016
  Serious: Yes (Death, Other)
  Sender: STEMLINE THERAPEUTICS
  Company Number: US-Stemline Therapeutics, Inc.-2024ST004475

PATIENT
  Sex: Female

DRUGS (1)
  1. ELZONRIS [Suspect]
     Active Substance: TAGRAXOFUSP-ERZS
     Indication: Product used for unknown indication
     Dosage: DAY 1 TO DAY 5, OF A 5 DAY CYCLE
     Route: 042
     Dates: start: 20240524, end: 20240529

REACTIONS (2)
  - Death [Fatal]
  - Condition aggravated [Unknown]
